FAERS Safety Report 5173990-X (Version None)
Quarter: 2006Q4

REPORT INFORMATION
  Report Type: 
  Country: None (occurrence: None)
  Receive Date: 20061214
  Receipt Date: 20061206
  Transmission Date: 20070319
  Serious: Yes (Hospitalization)
  Sender: FDA-Public Use
  Company Number: JP-MERCK-0612USA01361

PATIENT
  Age: 75 Year
  Sex: Male

DRUGS (2)
  1. AMIKACIN [Suspect]
     Route: 051
  2. PRIMAXIN [Suspect]
     Route: 051

REACTIONS (19)
  - ABDOMINAL NEOPLASM [None]
  - ABDOMINAL PAIN [None]
  - ABSCESS [None]
  - AORTIC ANEURYSM [None]
  - ASCITES [None]
  - BLOOD ALBUMIN DECREASED [None]
  - BLOOD CHLORIDE DECREASED [None]
  - BLOOD CULTURE POSITIVE [None]
  - BLOOD GLUCOSE DECREASED [None]
  - C-REACTIVE PROTEIN INCREASED [None]
  - DEEP VEIN THROMBOSIS [None]
  - DRUG INEFFECTIVE [None]
  - HAEMATOCRIT DECREASED [None]
  - HAEMATOMA [None]
  - HAEMOGLOBIN DECREASED [None]
  - KLEBSIELLA INFECTION [None]
  - OEDEMA PERIPHERAL [None]
  - URINARY TRACT DISORDER [None]
  - VASCULAR PSEUDOANEURYSM [None]
